FAERS Safety Report 11804778 (Version 1)
Quarter: 2015Q4

REPORT INFORMATION
  Report Type: Report from Study
  Country: US (occurrence: US)
  Receive Date: 20151205
  Receipt Date: 20151205
  Transmission Date: 20160305
  Serious: Yes (Death, Hospitalization, Other)
  Sender: FDA-Public Use
  Company Number: US-ABBVIE-15K-163-1513391-00

PATIENT
  Sex: Female
  Weight: 56.75 kg

DRUGS (2)
  1. HUMIRA [Suspect]
     Active Substance: ADALIMUMAB
     Indication: CROHN^S DISEASE
     Route: 058
  2. HUMIRA [Suspect]
     Active Substance: ADALIMUMAB
     Dosage: TWO OR THREE INJECTIONS AT A TIME EVERY COUPLE DAYS
     Route: 058
     Dates: start: 2014, end: 2015

REACTIONS (6)
  - Colon cancer stage IV [Fatal]
  - Malnutrition [Fatal]
  - Diplopia [Unknown]
  - Crohn^s disease [Unknown]
  - Fluid retention [Unknown]
  - Drug dose omission [Unknown]

NARRATIVE: CASE EVENT DATE: 2014
